FAERS Safety Report 9049223 (Version 4)
Quarter: 2014Q1

REPORT INFORMATION
  Report Type: Report from Study
  Country: IT (occurrence: IT)
  Receive Date: 20130205
  Receipt Date: 20140312
  Transmission Date: 20141002
  Serious: Yes (Hospitalization)
  Sender: FDA-Public Use
  Company Number: IT-ROCHE-1186326

PATIENT
  Age: 55 Year
  Sex: Female
  Weight: 67 kg

DRUGS (43)
  1. PERTUZUMAB [Suspect]
     Indication: HER-2 POSITIVE BREAST CANCER
     Dosage: LOADING DOSE AS PER PROTOCOL
     Route: 042
     Dates: start: 20121212
  2. PERTUZUMAB [Suspect]
     Dosage: MAINTENANCE DOSE?LAST DOSE PRIOR TO SERIOUS ADVERSE EVNT (SAE):  07/JAN/2013
     Route: 042
  3. TRASTUZUMAB [Suspect]
     Indication: HER-2 POSITIVE BREAST CANCER
     Dosage: LOADING DOSE AS PER PROTOCOL
     Route: 042
     Dates: start: 20121212
  4. TRASTUZUMAB [Suspect]
     Dosage: MAINTENANCE DOSE AS PER PROTOCOL?LAST DOSE PRIOR TO SERIOUS ADVERSE EVNT (SAE):  07/JAN/2013
     Route: 042
  5. DOCETAXEL [Suspect]
     Indication: HER-2 POSITIVE BREAST CANCER
     Dosage: LAST DOSE PRIOR TO SERIOUS ADVERSE EVNT (SAE):  07/JAN/2013
     Route: 042
     Dates: start: 20121212
  6. EUTIROX [Concomitant]
     Route: 065
     Dates: start: 20071108
  7. FLEBOCORTID [Concomitant]
     Route: 065
     Dates: start: 20121212, end: 20121212
  8. FLEBOCORTID [Concomitant]
     Route: 065
     Dates: start: 20130107, end: 20130107
  9. FLEBOCORTID [Concomitant]
     Route: 065
     Dates: start: 20130213, end: 20130213
  10. FLEBOCORTID [Concomitant]
     Route: 065
     Dates: start: 20130304, end: 20130304
  11. FLEBOCORTID [Concomitant]
     Route: 065
     Dates: start: 20130318, end: 20130318
  12. FLEBOCORTID [Concomitant]
     Route: 065
     Dates: start: 20130415, end: 20130415
  13. FLEBOCORTID [Concomitant]
     Route: 065
     Dates: start: 20130325, end: 20130325
  14. TRIMETON (ITALY) [Concomitant]
     Dosage: 1 VIAL
     Route: 065
     Dates: start: 20121212, end: 20121212
  15. TRIMETON (ITALY) [Concomitant]
     Dosage: 1 VIAL
     Route: 065
     Dates: start: 20130107, end: 20130107
  16. TRIMETON (ITALY) [Concomitant]
     Dosage: 1 VIAL
     Route: 065
     Dates: start: 20130213, end: 20130213
  17. TRIMETON (ITALY) [Concomitant]
     Dosage: 1 VIAL
     Route: 065
     Dates: start: 20130220, end: 20130220
  18. TRIMETON (ITALY) [Concomitant]
     Dosage: 1 VIAL
     Route: 065
     Dates: start: 20130304, end: 20130304
  19. TRIMETON (ITALY) [Concomitant]
     Dosage: 1 VIAL
     Route: 065
     Dates: start: 20130311, end: 20130311
  20. TRIMETON (ITALY) [Concomitant]
     Dosage: 1 VIAL
     Route: 065
     Dates: start: 20130318, end: 20130318
  21. TRIMETON (ITALY) [Concomitant]
     Dosage: 1 VIAL
     Route: 065
     Dates: start: 20130325, end: 20130325
  22. TRIMETON (ITALY) [Concomitant]
     Dosage: 1 VIAL
     Route: 065
     Dates: start: 20130408, end: 20130408
  23. TRIMETON (ITALY) [Concomitant]
     Dosage: 1/2 VIAL
     Route: 065
     Dates: start: 20130415, end: 20130415
  24. TRIMETON (ITALY) [Concomitant]
     Dosage: 1 VIAL
     Route: 065
     Dates: start: 20130422, end: 20130422
  25. TRIMETON (ITALY) [Concomitant]
     Dosage: 1 VIAL
     Route: 065
     Dates: start: 20130429, end: 20130429
  26. DEXAMETHASONE [Concomitant]
     Route: 065
     Dates: start: 20130107, end: 20130107
  27. DEXAMETHASONE [Concomitant]
     Route: 065
     Dates: start: 20121212, end: 20121212
  28. DEXAMETHASONE [Concomitant]
     Route: 065
     Dates: start: 20130213, end: 20130213
  29. DEXAMETHASONE [Concomitant]
     Route: 065
     Dates: start: 20130220, end: 20130220
  30. DEXAMETHASONE [Concomitant]
     Route: 065
     Dates: start: 20130304, end: 20130304
  31. DEXAMETHASONE [Concomitant]
     Route: 065
     Dates: start: 20130311, end: 20130311
  32. DEXAMETHASONE [Concomitant]
     Route: 065
     Dates: start: 20130318, end: 20130318
  33. DEXAMETHASONE [Concomitant]
     Route: 065
     Dates: start: 20130325, end: 20130325
  34. DEXAMETHASONE [Concomitant]
     Route: 065
     Dates: start: 20130408, end: 20130408
  35. DEXAMETHASONE [Concomitant]
     Route: 065
     Dates: start: 20130415, end: 20130415
  36. DEXAMETHASONE [Concomitant]
     Route: 065
     Dates: start: 20130422, end: 20130422
  37. DEXAMETHASONE [Concomitant]
     Route: 065
     Dates: start: 20130429, end: 20130429
  38. ZOFRAN [Concomitant]
     Dosage: 1 VIAL
     Route: 065
     Dates: start: 20130220, end: 20130220
  39. ZOFRAN [Concomitant]
     Dosage: 1 VIAL
     Route: 065
     Dates: start: 20130311, end: 20130311
  40. ZOFRAN [Concomitant]
     Dosage: 1 VIAL
     Route: 065
     Dates: start: 20130318, end: 20130318
  41. ZOFRAN [Concomitant]
     Dosage: 1 VIAL
     Route: 065
     Dates: start: 20130408, end: 20130408
  42. ZOFRAN [Concomitant]
     Dosage: 1 VIAL
     Route: 065
     Dates: start: 20130422, end: 20130422
  43. ZOFRAN [Concomitant]
     Dosage: 1 VIAL
     Route: 065
     Dates: start: 20130429, end: 20130429

REACTIONS (1)
  - Pleural effusion [Recovered/Resolved]
